FAERS Safety Report 7910428-0 (Version None)
Quarter: 2011Q4

REPORT INFORMATION
  Report Type: 
  Country: None (occurrence: None)
  Receive Date: 20111111
  Receipt Date: 20111102
  Transmission Date: 20120403
  Serious: Yes (Disabling)
  Sender: FDA-Public Use
  Company Number: PHHY2011GB96676

PATIENT
  Age: 47 Year
  Sex: Female

DRUGS (4)
  1. VALPROATE SODIUM [Suspect]
     Indication: BIPOLAR DISORDER
     Dosage: 1500 MG, UNK
     Route: 048
     Dates: start: 20101018
  2. DIAZEPAM [Concomitant]
     Dosage: UNK
  3. PROCYCLIDINE HYDROCHLORIDE 2MG TAB [Concomitant]
     Dosage: UNK
  4. OLANZAPINE [Interacting]
     Indication: BIPOLAR DISORDER
     Dosage: 10 MG, UNK
     Route: 048
     Dates: start: 20110612, end: 20110906

REACTIONS (3)
  - MOVEMENT DISORDER [None]
  - OEDEMA PERIPHERAL [None]
  - DRUG INTERACTION [None]
